FAERS Safety Report 9666430 (Version 1)
Quarter: 2013Q4

REPORT INFORMATION
  Report Type: Spontaneous
  Country: US (occurrence: None)
  Receive Date: 20131101
  Receipt Date: 20131101
  Transmission Date: 20140711
  Serious: No
  Sender: FDA-Public Use
  Company Number: None

PATIENT
  Age: 69 Year
  Sex: Female
  Weight: 45.36 kg

DRUGS (2)
  1. FIORICET [Suspect]
     Indication: MIGRAINE
     Dosage: 1 OR 2 AS NEEDED, ORAL
     Route: 048
     Dates: start: 201309
  2. FIORICET [Suspect]
     Indication: HEADACHE
     Dosage: 1 OR 2 AS NEEDED, ORAL
     Route: 048
     Dates: start: 201309

REACTIONS (5)
  - Product odour abnormal [None]
  - Stomatitis [None]
  - Oral discomfort [None]
  - Product contamination [None]
  - Product quality issue [None]
